FAERS Safety Report 23398125 (Version 1)
Quarter: 2024Q1

REPORT INFORMATION
  Report Type: Spontaneous
  Country: GB (occurrence: GB)
  Receive Date: 20240112
  Receipt Date: 20240112
  Transmission Date: 20240410
  Serious: Yes (Life-Threatening, Other)
  Sender: FDA-Public Use
  Company Number: None

PATIENT
  Age: 58 Year
  Sex: Male

DRUGS (1)
  1. ROCURONIUM [Suspect]
     Active Substance: ROCURONIUM BROMIDE
     Indication: Paralysis
     Dosage: 20MG STAT
     Route: 065
     Dates: start: 20231214, end: 20231214

REACTIONS (4)
  - Hypotension [Recovered/Resolved]
  - Hypoxia [Unknown]
  - End-tidal CO2 increased [Unknown]
  - Airway peak pressure increased [Unknown]

NARRATIVE: CASE EVENT DATE: 20231214
